FAERS Safety Report 6223457-2 (Version None)
Quarter: 2009Q2

REPORT INFORMATION
  Report Type: 
  Country: None (occurrence: None)
  Receive Date: 20090610
  Receipt Date: 20090602
  Transmission Date: 20091009
  Serious: Yes (Hospitalization)
  Sender: FDA-Public Use
  Company Number: WAES 0805USA05040

PATIENT
  Age: 78 Year
  Sex: Male
  Weight: 93.8946 kg

DRUGS (22)
  1. CAP VORINOSTAT UNK [Suspect]
     Indication: ACUTE MYELOID LEUKAEMIA
     Dosage: 400 MG/DAILY/PO
     Route: 048
     Dates: start: 20080331, end: 20080413
  2. CAP VORINOSTAT UNK [Suspect]
     Indication: ACUTE MYELOID LEUKAEMIA
     Dosage: 400 MG/DAILY/PO
     Route: 048
     Dates: start: 20080430, end: 20080513
  3. CAP VORINOSTAT UNK [Suspect]
     Indication: ACUTE MYELOID LEUKAEMIA
     Dosage: 400 MG/DAILY/PO
     Route: 048
     Dates: start: 20080528, end: 20080610
  4. CAP VORINOSTAT UNK [Suspect]
     Indication: ACUTE MYELOID LEUKAEMIA
     Dosage: 400 MG/DAILY/PO
     Route: 048
     Dates: start: 20080702, end: 20080715
  5. DECITABINE [Suspect]
     Indication: ACUTE MYELOID LEUKAEMIA
     Dosage: 45 MG/DAILY/IV; 45.4 MG/DAILY/IV; 44.8 MG/DAILY/IV
     Route: 042
     Dates: start: 20080331, end: 20080404
  6. DECITABINE [Suspect]
     Indication: ACUTE MYELOID LEUKAEMIA
     Dosage: 45 MG/DAILY/IV; 45.4 MG/DAILY/IV; 44.8 MG/DAILY/IV
     Route: 042
     Dates: start: 20080430, end: 20080504
  7. DECITABINE [Suspect]
     Indication: ACUTE MYELOID LEUKAEMIA
     Dosage: 45 MG/DAILY/IV; 45.4 MG/DAILY/IV; 44.8 MG/DAILY/IV
     Route: 042
     Dates: start: 20080528, end: 20080601
  8. DECITABINE [Suspect]
     Indication: ACUTE MYELOID LEUKAEMIA
     Dosage: 45 MG/DAILY/IV; 45.4 MG/DAILY/IV; 44.8 MG/DAILY/IV
     Route: 042
     Dates: start: 20080702, end: 20080703
  9. DECITABINE [Suspect]
     Indication: ACUTE MYELOID LEUKAEMIA
     Dosage: 45 MG/DAILY/IV; 45.4 MG/DAILY/IV; 44.8 MG/DAILY/IV
     Route: 042
     Dates: start: 20080705, end: 20080707
  10. AVELOX [Concomitant]
  11. COMPAZINE [Concomitant]
  12. FLOMAX (MORNIFLUMATE) [Concomitant]
  13. ZOFRAN [Concomitant]
  14. ACETAMINOPHEN [Concomitant]
  15. ACYCLOVIR [Concomitant]
  16. ALLOPURINOL [Concomitant]
  17. CHLORHEXIDINE GLUCONATE [Concomitant]
  18. DIPHENHYDRAMINE HYDROCHLORIDE [Concomitant]
  19. LISINOPRIL [Concomitant]
  20. LORAZEPAM [Concomitant]
  21. METFORMIN HCL [Concomitant]
  22. MOXIFLOXACIN HYDROCHLORIDE [Concomitant]

REACTIONS (28)
  - ASTHENIA [None]
  - ATRIAL FIBRILLATION [None]
  - BACTERIA URINE [None]
  - CARDIAC FAILURE CONGESTIVE [None]
  - CELLULITIS [None]
  - CHEST PAIN [None]
  - CLOSTRIDIAL INFECTION [None]
  - CONSTIPATION [None]
  - ELECTROCARDIOGRAM ST-T SEGMENT ABNORMAL [None]
  - ENTEROCOCCAL INFECTION [None]
  - FEBRILE NEUTROPENIA [None]
  - FURUNCLE [None]
  - HYPOKINESIA [None]
  - ISCHAEMIA [None]
  - JAW DISORDER [None]
  - LEFT VENTRICULAR DYSFUNCTION [None]
  - MASTOIDITIS [None]
  - METHICILLIN-RESISTANT STAPHYLOCOCCAL AUREUS TEST POSITIVE [None]
  - MYOCARDIAL INFARCTION [None]
  - NAUSEA [None]
  - PNEUMONIA [None]
  - PULMONARY OEDEMA [None]
  - QRS AXIS ABNORMAL [None]
  - RENAL CYST [None]
  - RIGHT VENTRICULAR DYSFUNCTION [None]
  - STAPHYLOCOCCAL INFECTION [None]
  - TENDERNESS [None]
  - VOMITING [None]
